FAERS Safety Report 8472976-7 (Version None)
Quarter: 2012Q2

REPORT INFORMATION
  Report Type: 
  Country: None (occurrence: None)
  Receive Date: 20120627
  Receipt Date: 20120613
  Transmission Date: 20120825
  Serious: Yes (Hospitalization, Other)
  Sender: FDA-Public Use
  Company Number: DE-FRI-1000036592

PATIENT
  Sex: Female

DRUGS (1)
  1. CITALOPRAM HYDROBROMIDE [Suspect]
     Dosage: 20 MG
     Route: 048
     Dates: start: 20120320, end: 20120423

REACTIONS (4)
  - DRUG ERUPTION [None]
  - RASH PUSTULAR [None]
  - PAIN OF SKIN [None]
  - RASH PRURITIC [None]
